FAERS Safety Report 26085373 (Version 1)
Quarter: 2025Q4

REPORT INFORMATION
  Report Type: Spontaneous
  Country: CN (occurrence: CN)
  Receive Date: 20251125
  Receipt Date: 20251125
  Transmission Date: 20260117
  Serious: Yes (Other)
  Sender: ROCHE
  Company Number: CN-ROCHE-10000441814

PATIENT
  Age: 11 Year
  Sex: Male

DRUGS (1)
  1. XOFLUZA [Suspect]
     Active Substance: BALOXAVIR MARBOXIL
     Indication: Influenza
     Dosage: 2TABLET/BOX
     Route: 065

REACTIONS (7)
  - Disorganised speech [Unknown]
  - Poor quality sleep [Unknown]
  - Crying [Unknown]
  - Hyperpyrexia [Unknown]
  - Dizziness [Unknown]
  - Asthenia [Unknown]
  - Cough [Unknown]
